FAERS Safety Report 23421910 (Version 1)
Quarter: 2024Q1

REPORT INFORMATION
  Report Type: Spontaneous
  Country: None (occurrence: IT)
  Receive Date: 20240119
  Receipt Date: 20240119
  Transmission Date: 20240409
  Serious: Yes (Other)
  Sender: FDA-Public Use
  Company Number: IT-Jiangsu Hansoh Pharmaceutical Co., Ltd-2151566

PATIENT
  Age: 19 Year
  Sex: Female

DRUGS (1)
  1. VINORELBINE [Suspect]
     Active Substance: VINORELBINE TARTRATE
     Indication: Desmoid tumour
     Route: 048

REACTIONS (3)
  - Neutropenia [Recovered/Resolved]
  - Nausea [Recovered/Resolved]
  - Diarrhoea [Recovered/Resolved]

NARRATIVE: CASE EVENT DATE: 20230515
